FAERS Safety Report 15142327 (Version 2)
Quarter: 2018Q3

REPORT INFORMATION
  Report Type: Spontaneous
  Country: US (occurrence: US)
  Receive Date: 20180713
  Receipt Date: 20180918
  Transmission Date: 20181010
  Serious: Yes (Other)
  Sender: FDA-Public Use
  Company Number: US-JNJFOC-20180709823

PATIENT
  Sex: Male

DRUGS (3)
  1. ZYTIGA [Suspect]
     Active Substance: ABIRATERONE ACETATE
     Indication: PRODUCT USED FOR UNKNOWN INDICATION
     Route: 048
  2. ENZALUTAMIDE [Suspect]
     Active Substance: ENZALUTAMIDE
     Indication: PROSTATE CANCER
     Route: 048
  3. ENZALUTAMIDE [Suspect]
     Active Substance: ENZALUTAMIDE
     Indication: PROSTATE CANCER
     Dosage: THE PATIENT STARTED THE TREATMENT WITH ENZALUTAMIDE ON AN UNSPECIFIED YEAR OF 02?FEB
     Route: 048

REACTIONS (6)
  - Headache [Not Recovered/Not Resolved]
  - Chest discomfort [Unknown]
  - Neoplasm malignant [Recovering/Resolving]
  - Malaise [Unknown]
  - Eye pain [Not Recovered/Not Resolved]
  - Feeling abnormal [Unknown]
